FAERS Safety Report 8167122-3 (Version None)
Quarter: 2012Q1

REPORT INFORMATION
  Report Type: 
  Country: None (occurrence: None)
  Receive Date: 20120221
  Receipt Date: 20120210
  Transmission Date: 20120608
  Serious: Yes (Other)
  Sender: FDA-Public Use
  Company Number: 2012MA001993

PATIENT
  Age: 39 Year
  Sex: Female

DRUGS (2)
  1. PROPRANOLOL HCL EXTENDED-RELEASE CAPSULES USP, AELLC [Suspect]
     Indication: ANXIETY
     Dosage: 80 MG;BID;PO
     Route: 048
     Dates: start: 20120112, end: 20120126
  2. ZOPICLONE [Concomitant]

REACTIONS (3)
  - PARAESTHESIA [None]
  - SKIN DISCOLOURATION [None]
  - FATIGUE [None]
